FAERS Safety Report 9314517 (Version 1)
Quarter: 2013Q2

REPORT INFORMATION
  Report Type: Spontaneous
  Country: TR (occurrence: None)
  Receive Date: 20130524
  Receipt Date: 20130524
  Transmission Date: 20140414
  Serious: Yes (Other)
  Sender: FDA-Public Use
  Company Number: VAL_02528_2013

PATIENT
  Age: 54 Year
  Sex: Female

DRUGS (2)
  1. CARBAMAZEPINE (CARBAMAZEPINE) [Suspect]
     Indication: IDIOPATHIC GENERALISED EPILEPSY
  2. CARBAMAZEPINE (CARBAMAZEPINE) [Suspect]
     Indication: OFF LABEL USE

REACTIONS (3)
  - Plasma cell myeloma [None]
  - Anaemia macrocytic [None]
  - Spinal fracture [None]
